FAERS Safety Report 7351958-2 (Version None)
Quarter: 2011Q1

REPORT INFORMATION
  Report Type: 
  Country: None (occurrence: None)
  Receive Date: 20110315
  Receipt Date: 20110309
  Transmission Date: 20110831
  Serious: Yes (Other)
  Sender: FDA-Public Use
  Company Number: US-PFIZER INC-2011051869

PATIENT

DRUGS (2)
  1. AROMASIN [Suspect]
     Dosage: UNK
  2. ANASTROZOLE [Suspect]
     Dosage: UNK

REACTIONS (3)
  - DYSPNOEA [None]
  - COUGH [None]
  - BRONCHITIS [None]
